FAERS Safety Report 6963041-6 (Version None)
Quarter: 2010Q3

REPORT INFORMATION
  Report Type: 
  Country: None (occurrence: None)
  Receive Date: 20100823
  Receipt Date: 20100519
  Transmission Date: 20110219
  Serious: No
  Sender: FDA-Public Use
  Company Number: 012239

PATIENT
  Sex: Female
  Weight: 68 kg

DRUGS (5)
  1. CIMZIA [Suspect]
     Indication: CROHN'S DISEASE
     Dosage: SUBCUTANEOUS
     Route: 058
     Dates: start: 20080101
  2. LISINOPRIL AND HYDROCHLOROTHIAZIDE [Concomitant]
  3. SIMVASTATIN [Concomitant]
  4. AMBIEN [Concomitant]
  5. MULTI-VITAMIN [Concomitant]

REACTIONS (4)
  - APPLICATION SITE PAIN [None]
  - APPLICATION SITE SWELLING [None]
  - PAIN IN EXTREMITY [None]
  - SLUGGISHNESS [None]
